FAERS Safety Report 9523429 (Version 1)
Quarter: 2013Q1

REPORT INFORMATION
  Report Type: Spontaneous
  Country: US (occurrence: None)
  Receive Date: 20130305
  Receipt Date: 20130305
  Transmission Date: 20140127
  Serious: Yes (Hospitalization)
  Sender: FDA-Public Use
  Company Number: 163-21880-12012617

PATIENT
  Age: 67 Year
  Sex: Male

DRUGS (9)
  1. REVLIMID (LENALIDOMIDE) (25 MILLIGRAM, CAPSULES) [Suspect]
     Indication: PLASMA CELL MYELOMA
     Route: 048
     Dates: start: 20110728
  2. PROCHLORPERAZINE EDISYLATE (PROCHLORPERAZINE EDISYLATE) (UNKNOWN) [Concomitant]
  3. STOOL SOFTENER (DOCUSATE SODIUM) (UNKNOWN) [Concomitant]
  4. ZOMETA (ZOLEDRONIC ACID) (UNKNOWN) [Concomitant]
  5. DEXAMETHASONE (DEXAMETHASONE) (UNKNOWN) [Concomitant]
  6. VELCADE (UNKNOWN) [Concomitant]
  7. ALEVE (NAPROXEN SODIUM) (UNKNOWN) [Concomitant]
  8. BAYER ASPIRIN (ACETYLSALICYLIC ACID) (UNKNOWN) [Concomitant]
  9. CENTRUM SILVER (CENTRUM SILVER) (UNKNOWN) [Concomitant]

REACTIONS (2)
  - Diarrhoea [None]
  - Syncope [None]
